FAERS Safety Report 8805651 (Version 1)
Quarter: 2012Q4

REPORT INFORMATION
  Report Type: 
  Country: US (occurrence: US)
  Receive Date: 20120924
  Receipt Date: 20120924
  Transmission Date: 20130627
  Serious: Yes (Death, Hospitalization)
  Sender: FDA-Public Use
  Company Number: US-ACTELION-A-US2012-71403

PATIENT
  Age: 57 Year
  Sex: Female

DRUGS (3)
  1. TRACLEER [Suspect]
     Indication: PULMONARY ARTERIAL HYPERTENSION
     Dosage: UNK
     Route: 048
  2. FLOLAN [Concomitant]
  3. COUMADIN [Concomitant]

REACTIONS (5)
  - Death [Fatal]
  - Coma [Unknown]
  - Device leakage [Unknown]
  - Cardiac arrest [Unknown]
  - Pericardial effusion [Unknown]
